FAERS Safety Report 8385707-6 (Version None)
Quarter: 2012Q2

REPORT INFORMATION
  Report Type: 
  Country: None (occurrence: None)
  Receive Date: 20120525
  Receipt Date: 20120515
  Transmission Date: 20120825
  Serious: Yes (Hospitalization)
  Sender: FDA-Public Use
  Company Number: JP-BRISTOL-MYERS SQUIBB COMPANY-15429509

PATIENT
  Age: 55 Year
  Sex: Female
  Weight: 40 kg

DRUGS (19)
  1. VITAMIN B12 [Concomitant]
     Dosage: TABS
     Route: 048
  2. LORAZEPAM [Concomitant]
     Dosage: TABS
     Route: 048
     Dates: start: 20101005
  3. LENDORMIN [Concomitant]
     Dosage: LENDORMIN D TABS
     Route: 048
  4. PRIMPERAN TAB [Concomitant]
     Indication: PROPHYLAXIS
     Dosage: TABS
     Route: 048
  5. MUCOSOLVAN [Concomitant]
     Dosage: TABS
     Route: 048
     Dates: end: 20100608
  6. MEROPENEM [Concomitant]
     Route: 042
     Dates: start: 20101012, end: 20101022
  7. LEVOFLOXACIN [Concomitant]
     Indication: INFECTION
     Dosage: TABS
     Route: 048
     Dates: start: 20100302
  8. COTRIM [Concomitant]
     Indication: INFECTION
     Dosage: 1DF:1 TABS
     Route: 048
  9. SPIRIVA [Concomitant]
     Dosage: 1DF:1 CAP
     Route: 055
  10. JUVELA [Concomitant]
     Dosage: TABS
     Route: 048
  11. JUZEN-TAIHO-TO [Concomitant]
     Route: 048
     Dates: end: 20100301
  12. DEPAS [Concomitant]
     Dosage: TABS
     Route: 048
     Dates: end: 20101011
  13. PREDNISOLONE [Concomitant]
     Dosage: TABS
     Route: 048
  14. FAMOTIDINE [Concomitant]
     Indication: PROPHYLAXIS
     Route: 048
     Dates: end: 20100524
  15. LANSOPRAZOLE [Concomitant]
     Indication: PROPHYLAXIS
     Dosage: TABS; TAKEPRON OD
     Route: 048
  16. SPRYCEL [Suspect]
     Indication: ACUTE LYMPHOCYTIC LEUKAEMIA
     Dosage: 140MG/DAY:18NOV-04OCT 50MG(BID):05OCT-22OCT 50MG/DAY:04NOV-12NOV2010
     Route: 048
     Dates: start: 20091118, end: 20101112
  17. CLONAZEPAM [Concomitant]
     Dosage: TABS
     Route: 048
     Dates: end: 20100412
  18. MAGNESIUM SULFATE [Concomitant]
     Dosage: TABS
     Route: 048
  19. ADVAIR DISKUS 100/50 [Concomitant]
     Dosage: 1DF:1 PIECE/DAY
     Route: 055
     Dates: end: 20101011

REACTIONS (3)
  - HYPONATRAEMIA [None]
  - INAPPROPRIATE ANTIDIURETIC HORMONE SECRETION [None]
  - PLEURAL EFFUSION [None]
